FAERS Safety Report 5262228-0 (Version None)
Quarter: 2007Q1

REPORT INFORMATION
  Report Type: 
  Country: None (occurrence: None)
  Receive Date: 20070312
  Receipt Date: 20070228
  Transmission Date: 20070707
  Serious: No
  Sender: FDA-Public Use
  Company Number: 2006UW08440

PATIENT
  Age: 26 Year
  Sex: Female
  Weight: 90 kg

DRUGS (9)
  1. SEROQUEL [Suspect]
     Indication: HALLUCINATION, VISUAL
     Route: 048
     Dates: start: 19980721, end: 19990501
  2. SEROQUEL [Suspect]
     Indication: DEPRESSION
     Route: 048
     Dates: start: 19980721, end: 19990501
  3. SEROQUEL [Suspect]
     Indication: DISSOCIATIVE IDENTITY DISORDER
     Route: 048
     Dates: start: 19980721, end: 19990501
  4. TRAZODONE HCL [Concomitant]
  5. MELLARIL [Concomitant]
  6. DESERYL [Concomitant]
  7. PROZAC [Concomitant]
  8. ZOLOFT [Concomitant]
  9. EFFEXOR [Concomitant]

REACTIONS (8)
  - ASTHMA [None]
  - BLOOD CHOLESTEROL INCREASED [None]
  - DIABETES MELLITUS NON-INSULIN-DEPENDENT [None]
  - DRUG EXPOSURE DURING PREGNANCY [None]
  - FIBROMYALGIA [None]
  - GESTATIONAL DIABETES [None]
  - HYPERLIPIDAEMIA [None]
  - HYPOTHYROIDISM [None]
